FAERS Safety Report 25102652 (Version 1)
Quarter: 2025Q1

REPORT INFORMATION
  Report Type: Spontaneous
  Country: US (occurrence: US)
  Receive Date: 20250321
  Receipt Date: 20250321
  Transmission Date: 20250409
  Serious: Yes (Other)
  Sender: RANBAXY
  Company Number: US-SUN PHARMACEUTICAL INDUSTRIES LTD-2025R1-499150

PATIENT
  Sex: Male

DRUGS (1)
  1. GABAPENTIN [Suspect]
     Active Substance: GABAPENTIN
     Indication: Schizoaffective disorder
     Route: 065

REACTIONS (4)
  - Lymphadenopathy [Unknown]
  - White blood cell count decreased [Unknown]
  - Illness [Unknown]
  - Off label use [Unknown]
